FAERS Safety Report 4454603-9 (Version None)
Quarter: 2004Q3

REPORT INFORMATION
  Report Type: 
  Country: None (occurrence: None)
  Receive Date: 20040920
  Receipt Date: 20040920
  Transmission Date: 20050211
  Serious: Yes (Other)
  Sender: FDA-Public Use
  Company Number: None

PATIENT
  Age: 74 Year
  Sex: Female

DRUGS (2)
  1. MEPIVICAINE 3%  INFILTRATION [Suspect]
     Indication: BIOPSY LIP
     Dosage: INFILTRATION
  2. MEPIVICAINE 3%  INFILTRATION [Suspect]
     Indication: LOCAL ANAESTHESIA
     Dosage: INFILTRATION

REACTIONS (5)
  - ANAPHYLACTOID REACTION [None]
  - POST PROCEDURAL COMPLICATION [None]
  - PRURITUS [None]
  - SKIN DISORDER [None]
  - URTICARIA [None]
